FAERS Safety Report 5691025-7 (Version None)
Quarter: 2008Q2

REPORT INFORMATION
  Report Type: 
  Country: None (occurrence: None)
  Receive Date: 20080401
  Receipt Date: 20080324
  Transmission Date: 20081010
  Serious: Yes (Other)
  Sender: FDA-Public Use
  Company Number: US-PFIZER INC-2008015044

PATIENT
  Sex: Male
  Weight: 66.7 kg

DRUGS (4)
  1. XALATAN [Suspect]
     Indication: GLAUCOMA
     Route: 047
  2. TOPROL-XL [Concomitant]
  3. DYAZIDE [Concomitant]
  4. FOSAMAX [Concomitant]

REACTIONS (5)
  - CATARACT [None]
  - HYPHAEMA [None]
  - INTENTIONAL DRUG MISUSE [None]
  - INTRAOCULAR PRESSURE INCREASED [None]
  - MACULAR HOLE [None]
